FAERS Safety Report 6414806-0 (Version None)
Quarter: 2009Q4

REPORT INFORMATION
  Report Type: 
  Country: None (occurrence: None)
  Receive Date: 20091026
  Receipt Date: 20091026
  Transmission Date: 20100525
  Serious: Yes (Life-Threatening, Other)
  Sender: FDA-Public Use
  Company Number: None

PATIENT

DRUGS (2)
  1. CYMBALTA [Suspect]
     Indication: DEPRESSION
     Dosage: 60MG ONE A DAY PO
     Route: 048
     Dates: start: 20050405, end: 20091001
  2. CYMBALTA [Suspect]
     Indication: PAIN
     Dosage: 60MG ONE A DAY PO
     Route: 048
     Dates: start: 20050405, end: 20091001

REACTIONS (7)
  - BRAIN OEDEMA [None]
  - DIZZINESS [None]
  - FEELING ABNORMAL [None]
  - HEAD DISCOMFORT [None]
  - NAUSEA [None]
  - NERVOUS SYSTEM DISORDER [None]
  - PAIN [None]
